FAERS Safety Report 20177440 (Version 8)
Quarter: 2022Q4

REPORT INFORMATION
  Report Type: Report from Study
  Country: CA (occurrence: CA)
  Receive Date: 20211213
  Receipt Date: 20221024
  Transmission Date: 20230112
  Serious: Yes (Other)
  Sender: FDA-Public Use
  Company Number: CA-BRISTOL-MYERS SQUIBB COMPANY-BMS-2021-063309

PATIENT
  Age: 90 Year
  Sex: Female
  Weight: 45.00 kg

DRUGS (6)
  1. ORENCIA [Suspect]
     Active Substance: ABATACEPT
     Indication: Rheumatoid arthritis
     Dosage: DOSE : 500 MG;     FREQ : 4 WEEKS
     Route: 042
     Dates: start: 20161108
  2. ORENCIA [Suspect]
     Active Substance: ABATACEPT
     Dosage: 500 MILLIGRAM, Q4WK LOT NUMBER: 1885043, 30-SEP-2024
     Route: 042
     Dates: start: 20161108
  3. ORENCIA [Suspect]
     Active Substance: ABATACEPT
     Route: 042
     Dates: start: 20161108
  4. ORENCIA [Suspect]
     Active Substance: ABATACEPT
     Dosage: Q4 WEEKS
     Route: 042
     Dates: start: 20161108
  5. ORENCIA [Suspect]
     Active Substance: ABATACEPT
     Route: 065
     Dates: start: 20220920
  6. ARAVA [Concomitant]
     Active Substance: LEFLUNOMIDE
     Indication: Product used for unknown indication
     Route: 065
     Dates: start: 20150101

REACTIONS (10)
  - Myocardial infarction [Unknown]
  - Pulmonary oedema [Unknown]
  - Incorrect dose administered [Unknown]
  - Product storage error [Unknown]
  - Insomnia [Unknown]
  - Asthenia [Unknown]
  - Inappropriate schedule of product administration [Recovered/Resolved]
  - Dyspnoea [Unknown]
  - Weight decreased [Unknown]
  - Oxygen saturation decreased [Unknown]

NARRATIVE: CASE EVENT DATE: 20210720
